FAERS Safety Report 8538198-6 (Version None)
Quarter: 2012Q3

REPORT INFORMATION
  Report Type: 
  Country: None (occurrence: None)
  Receive Date: 20120726
  Receipt Date: 20120723
  Transmission Date: 20120928
  Serious: Yes (Death, Hospitalization)
  Sender: FDA-Public Use
  Company Number: US-ASTRAZENECA-2010SE04183

PATIENT
  Age: 15217 Day
  Sex: Male
  Weight: 102.1 kg

DRUGS (14)
  1. SEROQUEL [Suspect]
     Route: 048
     Dates: start: 20060922, end: 20071101
  2. SEROQUEL [Suspect]
     Route: 048
     Dates: start: 20060922
  3. PAXIL CR [Concomitant]
     Dates: start: 20060922
  4. SEROQUEL [Suspect]
     Route: 048
     Dates: start: 20070601, end: 20071101
  5. ZOCOR [Concomitant]
     Dates: start: 20060922
  6. SEROQUEL [Suspect]
     Indication: DEPRESSION
     Route: 048
     Dates: start: 20050101
  7. SEROQUEL [Suspect]
     Route: 048
     Dates: start: 20060922, end: 20071101
  8. SEROQUEL [Suspect]
     Indication: BIPOLAR I DISORDER
     Route: 048
     Dates: start: 20050101
  9. SEROQUEL [Suspect]
     Route: 048
     Dates: start: 20060922
  10. SEROQUEL [Suspect]
     Route: 048
     Dates: start: 20070601, end: 20071101
  11. SEROQUEL [Suspect]
     Route: 048
     Dates: start: 20060922, end: 20071101
  12. SEROQUEL [Suspect]
     Indication: SCHIZOPHRENIA
     Route: 048
     Dates: start: 20050101
  13. SEROQUEL [Suspect]
     Route: 048
     Dates: start: 20070601, end: 20071101
  14. SEROQUEL [Suspect]
     Route: 048
     Dates: start: 20060922

REACTIONS (7)
  - HEAD INJURY [None]
  - TYPE 2 DIABETES MELLITUS [None]
  - BLOOD CHOLESTEROL INCREASED [None]
  - SKULL FRACTURE [None]
  - HYPERLIPIDAEMIA [None]
  - FALL [None]
  - WEIGHT INCREASED [None]
